FAERS Safety Report 7464467-7 (Version None)
Quarter: 2011Q2

REPORT INFORMATION
  Report Type: 
  Country: None (occurrence: None)
  Receive Date: 20110509
  Receipt Date: 20110504
  Transmission Date: 20111010
  Serious: No
  Sender: FDA-Public Use
  Company Number: US-PFIZER INC-2011096326

PATIENT
  Sex: Male
  Weight: 110 kg

DRUGS (2)
  1. CORDARONE [Suspect]
     Indication: ATRIAL FIBRILLATION
     Dosage: 200 MG, DAILY
     Route: 048
     Dates: start: 20070501
  2. METOPROLOL [Concomitant]
     Dosage: UNK

REACTIONS (2)
  - PHOTOSENSITIVITY REACTION [None]
  - CORNEAL DEPOSITS [None]
